FAERS Safety Report 16478484 (Version 3)
Quarter: 2019Q3

REPORT INFORMATION
  Report Type: Spontaneous
  Country: US (occurrence: US)
  Receive Date: 20190626
  Receipt Date: 20190916
  Transmission Date: 20191004
  Serious: No
  Sender: FDA-Public Use
  Company Number: US-PFIZER INC-2019272601

PATIENT
  Age: 17 Year
  Sex: Female
  Weight: 108.84 kg

DRUGS (2)
  1. IBUPROFEN. [Suspect]
     Active Substance: IBUPROFEN
     Indication: MUSCLE SPASMS
     Dosage: 1 DF, ONCE A DAY
     Dates: start: 1980
  2. ASPIRIN [ACETYLSALICYLIC ACID] [Suspect]
     Active Substance: ASPIRIN
     Indication: HEADACHE
     Dosage: 162 MG, ONCE A DAY
     Dates: start: 1980

REACTIONS (2)
  - Drug hypersensitivity [Recovered/Resolved]
  - Face oedema [Unknown]

NARRATIVE: CASE EVENT DATE: 1981
